FAERS Safety Report 21744879 (Version 1)
Quarter: 2022Q4

REPORT INFORMATION
  Report Type: Report from Study
  Country: US (occurrence: US)
  Receive Date: 20221219
  Receipt Date: 20221219
  Transmission Date: 20230112
  Serious: Yes (Hospitalization)
  Sender: FDA-Public Use
  Company Number: US-BRISTOL-MYERS SQUIBB COMPANY-2022-154731

PATIENT
  Age: 60 Year
  Sex: Male
  Weight: 143.1 kg

DRUGS (2)
  1. IPILIMUMAB [Suspect]
     Active Substance: IPILIMUMAB
     Indication: Renal cell carcinoma
     Route: 042
     Dates: end: 20221010
  2. NIVOLUMAB [Suspect]
     Active Substance: NIVOLUMAB
     Indication: Renal cell carcinoma
     Route: 042
     Dates: end: 20221010

REACTIONS (1)
  - Diplopia [Recovering/Resolving]

NARRATIVE: CASE EVENT DATE: 20221109
